FAERS Safety Report 5016744-7 (Version None)
Quarter: 2006Q2

REPORT INFORMATION
  Report Type: 
  Country: None (occurrence: None)
  Receive Date: 20060526
  Receipt Date: 20060517
  Transmission Date: 20061013
  Serious: Yes (Hospitalization)
  Sender: FDA-Public Use
  Company Number: GXKR2006CH02867

PATIENT
  Age: 50 Year
  Sex: Male

DRUGS (7)
  1. OMEPRAZOLE [Suspect]
     Dosage: 20 MG, QD, ORAL
     Route: 048
     Dates: start: 20060207, end: 20060201
  2. SILDENAFIL CITRATE [Concomitant]
  3. MARCUMAR [Concomitant]
  4. CIPROFLOXACIN [Suspect]
     Dosage: 1 DF, QD, ORAL
     Route: 048
     Dates: start: 20060413
  5. VOLTAREN [Suspect]
     Dosage: 75 MG AS NEEDED, ORAL
     Route: 048
     Dates: start: 20060207, end: 20060201
  6. VOLTAREN [Suspect]
     Dosage: ONCE/SINGLE, TOPICAL
     Route: 061
     Dates: start: 20060423, end: 20060423
  7. ZITHROMAX [Suspect]
     Dosage: 1 DF, QD, ORAL
     Route: 048
     Dates: start: 20060331, end: 20060412

REACTIONS (1)
  - THROMBOCYTOPENIA [None]
